FAERS Safety Report 17784966 (Version 1)
Quarter: 2020Q2

REPORT INFORMATION
  Report Type: Spontaneous
  Country: FR (occurrence: FR)
  Receive Date: 20200514
  Receipt Date: 20200514
  Transmission Date: 20200714
  Serious: Yes (Hospitalization)
  Sender: FDA-Public Use
  Company Number: FR-PFIZER INC-2020191282

PATIENT
  Age: 12 Year
  Sex: Male
  Weight: 44 kg

DRUGS (13)
  1. DOXORUBICIN HCL [Suspect]
     Active Substance: DOXORUBICIN HYDROCHLORIDE
     Indication: EWING^S SARCOMA
     Dosage: 37.5 MG/M2, SINGLE, 2 COURSES
     Route: 042
     Dates: start: 20200107, end: 20200210
  2. MESNA EG [Concomitant]
     Active Substance: MESNA
     Dosage: UNK
     Route: 042
  3. ETOPOSIDE. [Suspect]
     Active Substance: ETOPOSIDE
     Indication: EWING^S SARCOMA
     Dosage: 100 MG, 2 COURSES
     Route: 042
     Dates: start: 20200121, end: 20200228
  4. EMEND [Concomitant]
     Active Substance: APREPITANT
     Dosage: UNK
     Route: 048
  5. ONDANSETRON [Concomitant]
     Active Substance: ONDANSETRON
     Dosage: UNK
     Route: 048
  6. GABAPENTIN. [Concomitant]
     Active Substance: GABAPENTIN
     Dosage: UNK
     Route: 048
  7. CYCLOPHOSPHAMIDE. [Suspect]
     Active Substance: CYCLOPHOSPHAMIDE
     Indication: EWING^S SARCOMA
     Dosage: 1200 MG/M2, SINGLE, 2 COURSES
     Route: 042
     Dates: start: 20200107, end: 20200210
  8. EMEND [Concomitant]
     Active Substance: APREPITANT
     Dosage: UNK
     Route: 048
  9. VINCRISTINE SULFATE. [Suspect]
     Active Substance: VINCRISTINE SULFATE
     Indication: EWING^S SARCOMA
     Dosage: 1.5 MG/M2, 1X/DAY, 2 COURSES
     Route: 065
     Dates: start: 20200107, end: 20200110
  10. IFOSFAMIDE. [Suspect]
     Active Substance: IFOSFAMIDE
     Dosage: 1800 MG/M2, SINGLE, 2 COURSES
     Route: 042
     Dates: start: 20200121, end: 20200228
  11. LARGACTIL [CHLORPROMAZINE HYDROCHLORIDE] [Concomitant]
     Active Substance: CHLORPROMAZINE HYDROCHLORIDE
     Dosage: UNK
     Route: 042
  12. BACTRIM [Concomitant]
     Active Substance: SULFAMETHOXAZOLE\TRIMETHOPRIM
     Dosage: UNK
     Route: 048
  13. OMEPRAZOLE. [Concomitant]
     Active Substance: OMEPRAZOLE
     Dosage: UNK
     Route: 048

REACTIONS (1)
  - Venoocclusive disease [Recovering/Resolving]

NARRATIVE: CASE EVENT DATE: 20200319
